FAERS Safety Report 4639051-0 (Version None)
Quarter: 2005Q2

REPORT INFORMATION
  Report Type: 
  Country: None (occurrence: None)
  Receive Date: 20050418
  Receipt Date: 20050418
  Transmission Date: 20051028
  Serious: Yes (Hospitalization)
  Sender: FDA-Public Use
  Company Number: None

PATIENT
  Sex: Male

DRUGS (1)
  1. DARBEPOETIN ALFA [Suspect]
     Dosage: SEE IMAGE
     Dates: start: 20050112

REACTIONS (2)
  - LOSS OF CONSCIOUSNESS [None]
  - SINUS BRADYCARDIA [None]
